FAERS Safety Report 13066751 (Version 6)
Quarter: 2018Q2

REPORT INFORMATION
  Report Type: Spontaneous
  Country: IT (occurrence: IT)
  Receive Date: 20161227
  Receipt Date: 20180411
  Transmission Date: 20180711
  Serious: Yes (Life-Threatening, Hospitalization, Other)
  Sender: FDA-Public Use
  Company Number: IT-BIOGEN-2016BI00334723

PATIENT
  Age: 33 Year
  Sex: Female

DRUGS (1)
  1. TECFIDERA [Suspect]
     Active Substance: DIMETHYL FUMARATE
     Indication: MULTIPLE SCLEROSIS
     Dosage: MAINTENANCE DOSE
     Route: 048
     Dates: start: 20150801, end: 20161216

REACTIONS (12)
  - Listeria encephalitis [Unknown]
  - White blood cell count increased [Unknown]
  - Romberg test positive [Unknown]
  - Nausea [Unknown]
  - Multiple sclerosis relapse [Unknown]
  - Dizziness [Unknown]
  - Eye movement disorder [Unknown]
  - Lymphocyte count decreased [Unknown]
  - Coma [Recovered/Resolved]
  - Septic shock [Unknown]
  - Meningitis listeria [Unknown]
  - Neurological examination abnormal [Unknown]

NARRATIVE: CASE EVENT DATE: 20161216
